FAERS Safety Report 21393019 (Version 1)
Quarter: 2022Q3

REPORT INFORMATION
  Report Type: Spontaneous
  Country: US (occurrence: None)
  Receive Date: 20220928
  Receipt Date: 20220928
  Transmission Date: 20221027
  Serious: No
  Sender: FDA-Public Use
  Company Number: None

PATIENT
  Age: 44 Year
  Sex: Male
  Weight: 119.25 kg

DRUGS (2)
  1. NADOLOL [Suspect]
     Active Substance: NADOLOL
     Indication: Hypertension
     Dosage: FREQUENCY : DAILY;?
     Route: 048
     Dates: start: 20210701, end: 20220928
  2. NADOLOL [Suspect]
     Active Substance: NADOLOL
     Indication: Migraine prophylaxis

REACTIONS (7)
  - Product substitution issue [None]
  - Suspected product quality issue [None]
  - Blood pressure inadequately controlled [None]
  - Headache [None]
  - Chest discomfort [None]
  - Anxiety [None]
  - Therapeutic product effect decreased [None]

NARRATIVE: CASE EVENT DATE: 20220925
